FAERS Safety Report 9444400 (Version 1)
Quarter: 2013Q3

REPORT INFORMATION
  Report Type: Spontaneous
  Country: US (occurrence: None)
  Receive Date: 20130806
  Receipt Date: 20130806
  Transmission Date: 20140515
  Serious: Yes (Other)
  Sender: FDA-Public Use
  Company Number: None

PATIENT
  Age: 68 Year
  Sex: Female

DRUGS (1)
  1. MELOXICAM 15MG [Suspect]
     Indication: PAIN
     Dosage: 1 QD ORAL
     Route: 048
     Dates: start: 20130506, end: 20130629

REACTIONS (3)
  - Palpitations [None]
  - Dyspnoea [None]
  - Malaise [None]
